FAERS Safety Report 12326405 (Version 2)
Quarter: 2016Q2

REPORT INFORMATION
  Report Type: Report from Study
  Country: JP (occurrence: JP)
  Receive Date: 20160503
  Receipt Date: 20160615
  Transmission Date: 20160815
  Serious: Yes (Hospitalization)
  Sender: FDA-Public Use
  Company Number: JP-ROCHE-1750720

PATIENT
  Age: 64 Year
  Sex: Female
  Weight: 47 kg

DRUGS (14)
  1. OXYCONTIN [Concomitant]
     Active Substance: OXYCODONE HYDROCHLORIDE
     Indication: MALIGNANT MELANOMA
     Route: 048
     Dates: start: 20160317
  2. LIPITOR [Concomitant]
     Active Substance: ATORVASTATIN CALCIUM
     Route: 048
  3. MICARDIS [Concomitant]
     Active Substance: TELMISARTAN
     Route: 048
  4. LOXOPROFEN [Concomitant]
     Active Substance: LOXOPROFEN
     Indication: MALIGNANT MELANOMA
     Route: 048
     Dates: start: 20160307
  5. RANMARK [Concomitant]
     Active Substance: DENOSUMAB
     Indication: MALIGNANT MELANOMA
     Route: 058
     Dates: start: 20160315
  6. DENOTAS [Concomitant]
     Active Substance: CALCIUM CARBONATE\CHOLECALCIFEROL\MAGNESIUM CARBONATE
     Indication: MALIGNANT MELANOMA
     Route: 048
     Dates: start: 20160315
  7. OXINORM (JAPAN) [Concomitant]
     Active Substance: OXYCODONE HYDROCHLORIDE
     Indication: MALIGNANT MELANOMA
     Dosage: TAKEN AS NEEDED
     Route: 048
     Dates: start: 20160317
  8. VEMURAFENIB [Suspect]
     Active Substance: VEMURAFENIB
     Indication: MALIGNANT MELANOMA
     Route: 048
     Dates: start: 20160324, end: 20160418
  9. LIXIANA [Concomitant]
     Active Substance: EDOXABAN TOSILATE MONOHYDRATE
     Route: 048
     Dates: start: 20151210
  10. NOVAMIN (JAPAN) [Concomitant]
     Indication: MALIGNANT MELANOMA
     Route: 048
     Dates: start: 20160314
  11. BETAMETHASONE. [Concomitant]
     Active Substance: BETAMETHASONE
     Indication: MALIGNANT MELANOMA
     Route: 048
     Dates: start: 20160412
  12. LANSOPRAZOLE. [Concomitant]
     Active Substance: LANSOPRAZOLE
     Indication: MALIGNANT MELANOMA
     Route: 048
     Dates: start: 20160317
  13. MAGMITT [Concomitant]
     Active Substance: MAGNESIUM OXIDE
     Indication: MALIGNANT MELANOMA
     Route: 048
     Dates: start: 20160317
  14. BISOPROLOL [Concomitant]
     Active Substance: BISOPROLOL
     Route: 048

REACTIONS (1)
  - Liver disorder [Not Recovered/Not Resolved]

NARRATIVE: CASE EVENT DATE: 20160418
